FAERS Safety Report 7805732-0 (Version None)
Quarter: 2011Q4

REPORT INFORMATION
  Report Type: 
  Country: None (occurrence: None)
  Receive Date: 20111011
  Receipt Date: 20111003
  Transmission Date: 20120403
  Serious: No
  Sender: FDA-Public Use
  Company Number: US-BIOGENIDEC-2011BI034235

PATIENT
  Age: 21 Year
  Sex: Female

DRUGS (7)
  1. TYSABRI [Suspect]
     Route: 042
     Dates: start: 20110912
  2. CYMBALTA [Concomitant]
     Dates: end: 20110701
  3. TYSABRI [Suspect]
     Indication: MULTIPLE SCLEROSIS
     Route: 042
     Dates: start: 20110425, end: 20110620
  4. VICODIN [Concomitant]
     Dates: end: 20110701
  5. PERCOCET [Concomitant]
     Dates: end: 20110701
  6. TRAMADOL HCL [Concomitant]
     Dates: end: 20110701
  7. TYLENOL-500 [Concomitant]
     Dates: end: 20110701

REACTIONS (1)
  - HEPATIC ENZYME INCREASED [None]
